FAERS Safety Report 9224322 (Version 2)
Quarter: 2013Q2

REPORT INFORMATION
  Report Type: Spontaneous
  Country: FR (occurrence: FR)
  Receive Date: 20130411
  Receipt Date: 20130412
  Transmission Date: 20140414
  Serious: Yes (Life-Threatening, Hospitalization, Disabling, Other)
  Sender: FDA-Public Use
  Company Number: PHHY2013FR027453

PATIENT
  Age: 77 Year
  Sex: Female
  Weight: 75 kg

DRUGS (4)
  1. TASIGNA [Suspect]
     Indication: CHRONIC MYELOID LEUKAEMIA
     Dosage: 600 MG, QD
     Route: 048
     Dates: start: 200909, end: 201303
  2. AMIODARONE [Concomitant]
  3. PLAVIX [Concomitant]
  4. KARDEGIC [Concomitant]

REACTIONS (7)
  - Arterial disorder [Recovered/Resolved with Sequelae]
  - Peripheral artery stenosis [Recovered/Resolved with Sequelae]
  - Peripheral arterial occlusive disease [Unknown]
  - Arteritis [Recovered/Resolved with Sequelae]
  - Limb discomfort [Recovered/Resolved with Sequelae]
  - Peripheral coldness [Recovered/Resolved with Sequelae]
  - Pain in extremity [Recovered/Resolved with Sequelae]
